FAERS Safety Report 8263466-5 (Version None)
Quarter: 2012Q2

REPORT INFORMATION
  Report Type: 
  Country: None (occurrence: None)
  Receive Date: 20120405
  Receipt Date: 20120328
  Transmission Date: 20120825
  Serious: Yes (Other)
  Sender: FDA-Public Use
  Company Number: US-ABBOTT-12P-163-0919643-00

PATIENT
  Sex: Male
  Weight: 61.29 kg

DRUGS (6)
  1. FISH OIL [Concomitant]
     Indication: SUPPLEMENTATION THERAPY
  2. HUMIRA [Suspect]
     Indication: CROHN'S DISEASE
     Dates: start: 20100301, end: 20120201
  3. METHOTREXATE [Concomitant]
     Indication: CROHN'S DISEASE
  4. VITAMIN TAB [Concomitant]
     Indication: VITAMIN SUPPLEMENTATION
  5. DICYCLOMINE [Concomitant]
     Indication: IRRITABLE BOWEL SYNDROME
  6. FIBER [Concomitant]
     Indication: CROHN'S DISEASE
     Dosage: PILLS

REACTIONS (6)
  - ARTHRALGIA [None]
  - LYME DISEASE [None]
  - TOOTH INFECTION [None]
  - DENTAL CARIES [None]
  - BONE DENSITY DECREASED [None]
  - TOOTH FRACTURE [None]
